FAERS Safety Report 20166262 (Version 3)
Quarter: 2022Q2

REPORT INFORMATION
  Report Type: Report from Study
  Country: US (occurrence: US)
  Receive Date: 20211209
  Receipt Date: 20220407
  Transmission Date: 20220720
  Serious: Yes (Other)
  Sender: FDA-Public Use
  Company Number: US-JNJFOC-20211213509

PATIENT
  Age: 40 Year
  Sex: Female
  Weight: 64.468 kg

DRUGS (3)
  1. SPRAVATO [Suspect]
     Active Substance: ESKETAMINE
     Indication: Depression
     Dosage: 84 MG, 8 TOTAL DOSES
     Dates: start: 20211111, end: 20211209
  2. SPRAVATO [Suspect]
     Active Substance: ESKETAMINE
     Indication: Major depression
  3. LITHIUM [Concomitant]
     Active Substance: LITHIUM

REACTIONS (3)
  - Suicidal ideation [Recovered/Resolved]
  - Major depression [Recovering/Resolving]
  - Sedation [Recovered/Resolved]

NARRATIVE: CASE EVENT DATE: 20211202
